FAERS Safety Report 6620581-7 (Version None)
Quarter: 2010Q1

REPORT INFORMATION
  Report Type: 
  Country: None (occurrence: None)
  Receive Date: 20100223
  Receipt Date: 20100111
  Transmission Date: 20100710
  Serious: No
  Sender: FDA-Public Use
  Company Number: 004350

PATIENT
  Sex: Female
  Weight: 86.3 kg

DRUGS (2)
  1. CIMZIA [Suspect]
     Indication: RHEUMATOID ARTHRITIS
     Dosage: (SUBCUTANEOUS)
     Route: 058
     Dates: start: 20090801
  2. LEFLUNOMIDE [Concomitant]

REACTIONS (5)
  - INJECTION SITE PAIN [None]
  - INJECTION SITE SWELLING [None]
  - PRURITUS GENERALISED [None]
  - RASH ERYTHEMATOUS [None]
  - SKIN WARM [None]
